FAERS Safety Report 25214961 (Version 1)
Quarter: 2025Q2

REPORT INFORMATION
  Report Type: Spontaneous
  Country: CN (occurrence: CN)
  Receive Date: 20250418
  Receipt Date: 20250418
  Transmission Date: 20250717
  Serious: Yes (Other)
  Sender: PFIZER
  Company Number: CN-PFIZER INC-PV202500044263

PATIENT
  Age: 60 Year
  Sex: Male

DRUGS (7)
  1. METHYLPREDNISOLONE [Suspect]
     Active Substance: METHYLPREDNISOLONE
     Indication: Autoimmune haemolytic anaemia
     Dosage: 80 MG, DAILY
  2. METHYLPREDNISOLONE [Suspect]
     Active Substance: METHYLPREDNISOLONE
     Dosage: 500 MG, DAILY
  3. METHYLPREDNISOLONE [Suspect]
     Active Substance: METHYLPREDNISOLONE
     Dosage: 240 MG, DAILY
  4. METHYLPREDNISOLONE [Suspect]
     Active Substance: METHYLPREDNISOLONE
     Dosage: 120 MG, DAILY
  5. METHYLPREDNISOLONE [Suspect]
     Active Substance: METHYLPREDNISOLONE
     Dosage: ON DAY 15
  6. HUMAN IMMUNOGLOBULIN G [Concomitant]
     Active Substance: HUMAN IMMUNOGLOBULIN G
     Indication: Autoimmune haemolytic anaemia
     Route: 042
  7. IPTACOPAN [Concomitant]
     Active Substance: IPTACOPAN
     Indication: Autoimmune haemolytic anaemia
     Dosage: 200 MG, 2X/DAY

REACTIONS (2)
  - Pneumonia [Recovering/Resolving]
  - Osteoporosis [Recovering/Resolving]
